FAERS Safety Report 7799601-2 (Version None)
Quarter: 2011Q4

REPORT INFORMATION
  Report Type: 
  Country: None (occurrence: None)
  Receive Date: 20111006
  Receipt Date: 20110929
  Transmission Date: 20120403
  Serious: Yes (Hospitalization)
  Sender: FDA-Public Use
  Company Number: US-MYLANLABS-2011S1020283

PATIENT
  Age: 54 Year
  Sex: Female

DRUGS (1)
  1. LEVOTHYROXINE SODIUM [Suspect]
     Indication: HYPOTHYROIDISM
     Route: 048
     Dates: start: 20110604, end: 20110604

REACTIONS (5)
  - ASTHENIA [None]
  - DECREASED APPETITE [None]
  - VISION BLURRED [None]
  - GAIT DISTURBANCE [None]
  - DIZZINESS [None]
